FAERS Safety Report 18656664 (Version 1)
Quarter: 2020Q4

REPORT INFORMATION
  Report Type: Spontaneous
  Country: ES (occurrence: ES)
  Receive Date: 20201223
  Receipt Date: 20201223
  Transmission Date: 20210114
  Serious: Yes (Hospitalization, Other)
  Sender: FDA-Public Use
  Company Number: ES-009507513-2012ESP009276

PATIENT
  Age: 51 Year
  Sex: Female
  Weight: 80 kg

DRUGS (15)
  1. SITAGLIPTIN PHOSPHATE [Suspect]
     Active Substance: SITAGLIPTIN PHOSPHATE
     Dosage: 50 MG, EVERY 12 HOURS
     Route: 065
     Dates: start: 20170829, end: 20171127
  2. METFORMIN [Concomitant]
     Active Substance: METFORMIN HYDROCHLORIDE
     Indication: TYPE 2 DIABETES MELLITUS
     Dosage: 1000 MG, EVERY 12 HOURS
     Route: 065
     Dates: start: 20151112
  3. PITAVASTATIN CALCIUM [Concomitant]
     Active Substance: PITAVASTATIN CALCIUM
     Indication: HYPERCHOLESTEROLAEMIA
     Dosage: 1 TABLET, EVERY DAY
     Dates: start: 20171127
  4. ANAFRANIL [Concomitant]
     Active Substance: CLOMIPRAMINE HYDROCHLORIDE
     Indication: DEPRESSION
     Dosage: 1 TABLET, EVERY 12 HOURS, 28 GROOVED COATED TABLETS
     Route: 065
     Dates: start: 20181218
  5. EMPAGLIFLOZIN [Concomitant]
     Active Substance: EMPAGLIFLOZIN
     Indication: TYPE 2 DIABETES MELLITUS
     Dosage: 5 MG, EVERY 12 HOURS
     Route: 065
     Dates: start: 20181019
  6. OZEMPIC [Suspect]
     Active Substance: SEMAGLUTIDE
     Dosage: 1 DOSE OF 0.5MG, EVERY 7 DAYS, IN 1 PRE-FILLED PEN OF 1,5 ML
     Route: 065
     Dates: start: 20190705, end: 20190924
  7. OZEMPIC [Suspect]
     Active Substance: SEMAGLUTIDE
     Dosage: 1 DOSE OF 1 MG EVERY 7 DAYS, IN 1 PRE-FILLED PEN OF 1,5 ML
     Route: 065
     Dates: start: 20190924
  8. EUTIROX [Concomitant]
     Active Substance: LEVOTHYROXINE SODIUM
     Indication: GOITRE
  9. ENALAPRIL MALEATE (+) HYDROCHLOROTHIAZIDE [Concomitant]
     Active Substance: ENALAPRIL MALEATE\HYDROCHLOROTHIAZIDE
     Indication: ESSENTIAL HYPERTENSION
     Dosage: 1 TABLET, EVERY 12 HOURS
     Route: 065
     Dates: start: 20180725
  10. LINAGLIPTIN [Suspect]
     Active Substance: LINAGLIPTIN
     Indication: TYPE 2 DIABETES MELLITUS
     Dosage: 2.5 MG, EVERY 12 HOURS
     Dates: start: 20171127, end: 20181019
  11. LANTUS [Concomitant]
     Active Substance: INSULIN GLARGINE
     Indication: TYPE 2 DIABETES MELLITUS
     Dosage: (30-80) IU AT BREAKFAST, IN 5 PRE-FILLED PENS OF 3 ML
     Dates: start: 20171215
  12. EMCONCOR COR [Concomitant]
     Active Substance: BISOPROLOL
     Dosage: 1 TABLET, EVERY 12 HOURS
  13. EUTIROX [Concomitant]
     Active Substance: LEVOTHYROXINE SODIUM
     Indication: THYROIDECTOMY
     Dosage: 1 TABLET EVERY DAY
     Route: 065
     Dates: start: 20190109
  14. VICTOZA [Concomitant]
     Active Substance: LIRAGLUTIDE
     Dosage: 1.2 MG, EVERY DAY, IN 2 PRE-FILLED PENS OF 3 ML
     Dates: start: 20181019, end: 20190705
  15. EMCONCOR COR [Concomitant]
     Active Substance: BISOPROLOL
     Dosage: 1 TABLET, EVERY 12 HOURS
     Route: 065
     Dates: start: 20180716

REACTIONS (1)
  - Pancreatic neuroendocrine tumour [Recovered/Resolved]

NARRATIVE: CASE EVENT DATE: 20190705
